FAERS Safety Report 6051526-9 (Version None)
Quarter: 2009Q1

REPORT INFORMATION
  Report Type: 
  Country: None (occurrence: None)
  Receive Date: 20090126
  Receipt Date: 20090116
  Transmission Date: 20090719
  Serious: Yes (Hospitalization)
  Sender: FDA-Public Use
  Company Number: A0764962A

PATIENT
  Age: 56 Year
  Sex: Male
  Weight: 105.5 kg

DRUGS (4)
  1. AVANDIA [Suspect]
     Indication: TYPE 2 DIABETES MELLITUS
     Route: 048
     Dates: end: 20060101
  2. LIPITOR [Concomitant]
  3. ZOCOR [Concomitant]
  4. BUPROPION HYDROCHLORIDE [Concomitant]

REACTIONS (7)
  - ARRHYTHMIA [None]
  - ARTERIOSCLEROSIS [None]
  - BLOOD CHOLESTEROL ABNORMAL [None]
  - FLUID RETENTION [None]
  - HEART INJURY [None]
  - HYPERTENSION [None]
  - MYOCARDIAL INFARCTION [None]
